FAERS Safety Report 10330272 (Version 1)
Quarter: 2014Q3

REPORT INFORMATION
  Report Type: Spontaneous
  Country: US (occurrence: US)
  Receive Date: 20140721
  Receipt Date: 20140721
  Transmission Date: 20150326
  Serious: Yes (Hospitalization)
  Sender: FDA-Public Use
  Company Number: PHHY2014US087070

PATIENT
  Age: 67 Year
  Sex: Male

DRUGS (5)
  1. AMANTADINE [Suspect]
     Active Substance: AMANTADINE
     Dosage: 200 MG, UNK
  2. RASAGILINE [Concomitant]
     Active Substance: RASAGILINE
     Dosage: 1 MG, UNK
  3. DEPAKOTE [Concomitant]
     Active Substance: DIVALPROEX SODIUM
     Dosage: 1.25 MG, UNK
  4. CLOZAPINE. [Concomitant]
     Active Substance: CLOZAPINE
     Dosage: 25 MG, UNK
  5. CARBIDOPA AND LEVODOPA [Concomitant]
     Active Substance: CARBIDOPA\LEVODOPA
     Dosage: 4 DF, QID

REACTIONS (14)
  - Back pain [Unknown]
  - Cold sweat [Unknown]
  - Resting tremor [Unknown]
  - Myoglobin blood increased [Unknown]
  - Toxicity to various agents [Unknown]
  - Hallucination [Unknown]
  - Gait disturbance [Unknown]
  - Blood creatine phosphokinase increased [Unknown]
  - Neutrophilia [Unknown]
  - Dyskinesia [Unknown]
  - Fall [Unknown]
  - Arthralgia [Unknown]
  - Disorientation [Unknown]
  - Hallucination, visual [Unknown]
